FAERS Safety Report 21413533 (Version 2)
Quarter: 2023Q4

REPORT INFORMATION
  Report Type: Report from Study
  Country: JP (occurrence: JP)
  Receive Date: 20221006
  Receipt Date: 20231113
  Transmission Date: 20240109
  Serious: Yes (Death, Other)
  Sender: FDA-Public Use
  Company Number: JP-ASTELLAS-2022JP004862

PATIENT
  Age: 74 Year
  Sex: Male
  Weight: 63.4 kg

DRUGS (15)
  1. ENFORTUMAB VEDOTIN [Suspect]
     Active Substance: ENFORTUMAB VEDOTIN
     Indication: Transitional cell carcinoma
     Route: 041
     Dates: start: 20220203, end: 20220203
  2. ENFORTUMAB VEDOTIN [Suspect]
     Active Substance: ENFORTUMAB VEDOTIN
     Route: 041
     Dates: start: 20220217, end: 20220217
  3. ENFORTUMAB VEDOTIN [Suspect]
     Active Substance: ENFORTUMAB VEDOTIN
     Dosage: 0.8 MG/KG, UNKNOWN FREQ.
     Route: 041
     Dates: start: 20220303, end: 20220428
  4. ENFORTUMAB VEDOTIN [Suspect]
     Active Substance: ENFORTUMAB VEDOTIN
     Dosage: 0.8 MG/KG, UNKNOWN FREQ.
     Route: 041
     Dates: start: 20220512, end: 20220707
  5. ENFORTUMAB VEDOTIN [Suspect]
     Active Substance: ENFORTUMAB VEDOTIN
     Dosage: 0.8 MG/KG, UNKNOWN FREQ.
     Route: 041
     Dates: start: 20220825, end: 20220825
  6. LYRICA [Concomitant]
     Active Substance: PREGABALIN
     Indication: Neuropathy peripheral
     Dosage: UNK UNK, UNKNOWN FREQ.
     Route: 065
  7. CALONAL [Concomitant]
     Active Substance: ACETAMINOPHEN
     Indication: Pyrexia
     Route: 048
     Dates: start: 20220121, end: 20220207
  8. CALONAL [Concomitant]
     Active Substance: ACETAMINOPHEN
     Indication: Pyrexia
  9. VANCOMYCIN [Concomitant]
     Active Substance: VANCOMYCIN
     Indication: Pyrexia
     Route: 065
     Dates: start: 20220126, end: 20220210
  10. VANCOMYCIN [Concomitant]
     Active Substance: VANCOMYCIN
     Indication: Pyrexia
  11. ACETAMINOPHEN [Concomitant]
     Active Substance: ACETAMINOPHEN
     Indication: Pyrexia
     Route: 065
     Dates: start: 20220205, end: 20220210
  12. BILASTINE [Concomitant]
     Active Substance: BILASTINE
     Indication: Rash
     Route: 048
     Dates: start: 20220211, end: 20220225
  13. EURAX H [Concomitant]
     Indication: Rash
     Dosage: UNK UNK, UNKNOWN FREQ.(APPROPRIATE AMOUNT, AS NEEDED)
     Route: 065
     Dates: start: 20220211, end: 20220310
  14. PREDONINE [Concomitant]
     Active Substance: PREDNISOLONE
     Indication: Rash
     Route: 048
     Dates: start: 20220223, end: 20220225
  15. PREDONINE [Concomitant]
     Active Substance: PREDNISOLONE
     Route: 048
     Dates: start: 20220226, end: 20220302

REACTIONS (6)
  - Malignant neoplasm progression [Fatal]
  - Neuropathy peripheral [Unknown]
  - Rash [Unknown]
  - Rash [Recovered/Resolved]
  - Pyrexia [Recovered/Resolved]
  - Inappropriate schedule of product administration [Unknown]

NARRATIVE: CASE EVENT DATE: 20220205
